FAERS Safety Report 18576529 (Version 2)
Quarter: 2020Q4

REPORT INFORMATION
  Report Type: Spontaneous
  Country: US (occurrence: US)
  Receive Date: 20201203
  Receipt Date: 20201228
  Transmission Date: 20210114
  Serious: Yes (Other)
  Sender: FDA-Public Use
  Company Number: US-BAYER-2020-258585

PATIENT
  Age: 64 Year
  Sex: Male

DRUGS (2)
  1. ACETYLSALICYLIC ACID [Suspect]
     Active Substance: ASPIRIN
     Dosage: 81 MG
  2. ELIQUIS [Suspect]
     Active Substance: APIXABAN
     Dosage: 5 MG

REACTIONS (2)
  - Melaena [Unknown]
  - Packed red blood cell transfusion [Unknown]
